FAERS Safety Report 12934105 (Version 5)
Quarter: 2017Q1

REPORT INFORMATION
  Report Type: Report from Study
  Country: CA (occurrence: CA)
  Receive Date: 20161111
  Receipt Date: 20170125
  Transmission Date: 20170428
  Serious: Yes (Hospitalization, Other)
  Sender: FDA-Public Use
  Company Number: CA-KADMON PHARMACEUTICALS, LLC-KAD201611-004010

PATIENT
  Age: 72 Year
  Sex: Male
  Weight: 90 kg

DRUGS (5)
  1. RIBAVIRIN. [Suspect]
     Active Substance: RIBAVIRIN
     Indication: HEPATITIS C
     Dosage: TABLET
     Route: 048
     Dates: start: 20161026
  2. TECHNIVIE [Suspect]
     Active Substance: OMBITASVIR HEMINONAHYDRATE\PARITAPREVIR DIHYDRATE\RITONAVIR
     Indication: HEPATITIS C
     Dosage: TWO-12.5/75/50 MG TABLETS ONCE DAILY
     Route: 048
     Dates: start: 20161026
  3. TACROLIMUS. [Suspect]
     Active Substance: TACROLIMUS
  4. TACROLIMUS. [Suspect]
     Active Substance: TACROLIMUS
     Dates: start: 20161026
  5. RIBAVIRIN. [Suspect]
     Active Substance: RIBAVIRIN
     Dosage: TABLET; 200 MG 1 DAY AND 400 MG ANOTHER DAY IN ALTERNATE
     Route: 048
     Dates: start: 2016

REACTIONS (7)
  - Vomiting [Recovering/Resolving]
  - Overdose [Recovering/Resolving]
  - Blood creatinine increased [Recovering/Resolving]
  - Blood bilirubin increased [Recovering/Resolving]
  - Diarrhoea [Recovered/Resolved]
  - Post procedural infection [Recovering/Resolving]
  - Malaise [Recovering/Resolving]

NARRATIVE: CASE EVENT DATE: 20161031
